FAERS Safety Report 7392746-0 (Version None)
Quarter: 2011Q2

REPORT INFORMATION
  Report Type: 
  Country: None (occurrence: None)
  Receive Date: 20110404
  Receipt Date: 20110319
  Transmission Date: 20111010
  Serious: No
  Sender: FDA-Public Use
  Company Number: US-B.I. PHARMACEUTICALS,INC./RIDGEFIELD-2011-BP-08741BP

PATIENT
  Sex: Female

DRUGS (2)
  1. PRADAXA [Suspect]
     Indication: ATRIAL FIBRILLATION
     Dosage: 300 MG
     Route: 048
     Dates: start: 20110211
  2. HYDRALAZINE HCL [Suspect]
     Dates: start: 20110204, end: 20110219

REACTIONS (4)
  - FLATULENCE [None]
  - ERUCTATION [None]
  - ODYNOPHAGIA [None]
  - HYPERSENSITIVITY [None]
